FAERS Safety Report 18678189 (Version 2)
Quarter: 2021Q1

REPORT INFORMATION
  Report Type: Spontaneous
  Country: US (occurrence: US)
  Receive Date: 20201229
  Receipt Date: 20210301
  Transmission Date: 20210419
  Serious: Yes (Other)
  Sender: FDA-Public Use
  Company Number: US-PFIZER INC-2020510302

PATIENT
  Age: 84 Year
  Sex: Male

DRUGS (1)
  1. VYNDAMAX [Suspect]
     Active Substance: TAFAMIDIS
     Dosage: 61 MG
     Dates: start: 20191008

REACTIONS (10)
  - Dyspnoea [Recovered/Resolved]
  - Acute kidney injury [Unknown]
  - Hypovolaemia [Recovered/Resolved]
  - Alopecia [Unknown]
  - Anxiety [Recovering/Resolving]
  - Abdominal distension [Recovering/Resolving]
  - Dizziness [Recovered/Resolved]
  - Cardiac failure acute [Unknown]
  - Fluid overload [Unknown]
  - Pain [Unknown]

NARRATIVE: CASE EVENT DATE: 202010
